FAERS Safety Report 7294423-3 (Version None)
Quarter: 2011Q1

REPORT INFORMATION
  Report Type: 
  Country: None (occurrence: None)
  Receive Date: 20110215
  Receipt Date: 20110210
  Transmission Date: 20110831
  Serious: Yes (Death)
  Sender: FDA-Public Use
  Company Number: NL-BRISTOL-MYERS SQUIBB COMPANY-15544968

PATIENT

DRUGS (1)
  1. ABILIFY [Suspect]

REACTIONS (1)
  - MYOCARDIAL INFARCTION [None]
